APPROVED DRUG PRODUCT: PROCHLORPERAZINE EDISYLATE
Active Ingredient: PROCHLORPERAZINE EDISYLATE
Strength: EQ 5MG BASE/ML
Dosage Form/Route: INJECTABLE;INJECTION
Application: A204147 | Product #001 | TE Code: AP
Applicant: AVET LIFESCIENCES LTD
Approved: Oct 15, 2013 | RLD: No | RS: Yes | Type: RX